FAERS Safety Report 24258402 (Version 2)
Quarter: 2024Q3

REPORT INFORMATION
  Report Type: Spontaneous
  Country: US (occurrence: None)
  Receive Date: 20240828
  Receipt Date: 20240905
  Transmission Date: 20241017
  Serious: No
  Sender: ASTRAZENECA
  Company Number: 2024A177710

PATIENT
  Age: 25738 Day
  Sex: Female

DRUGS (1)
  1. BYDUREON BCISE [Suspect]
     Active Substance: EXENATIDE

REACTIONS (10)
  - Injection site pain [Unknown]
  - Injection site haemorrhage [Unknown]
  - Blood glucose decreased [Unknown]
  - Injection site nodule [Unknown]
  - Injection site bruising [Unknown]
  - Injection site pruritus [Unknown]
  - Device use issue [Unknown]
  - Incorrect disposal of product [Unknown]
  - Device issue [Unknown]
  - Wrong technique in product usage process [Unknown]

NARRATIVE: CASE EVENT DATE: 20240805
